FAERS Safety Report 4644146-1 (Version None)
Quarter: 2005Q2

REPORT INFORMATION
  Report Type: 
  Country: None (occurrence: None)
  Receive Date: 20050425
  Receipt Date: 20050416
  Transmission Date: 20051028
  Serious: Yes (Death)
  Sender: FDA-Public Use
  Company Number: 2005-UK-00488UK

PATIENT
  Age: 78 Year
  Sex: Male

DRUGS (11)
  1. SERETIDE [Suspect]
     Route: 065
  2. SALBUTAMOL [Suspect]
     Route: 065
  3. FUROSEMIDE [Suspect]
     Route: 065
  4. SPIRIVA [Suspect]
     Indication: CHRONIC OBSTRUCTIVE PULMONARY DISEASE
     Dates: start: 20040201
  5. ASPIRIN [Suspect]
     Route: 065
  6. NICORANDIL [Suspect]
     Route: 065
  7. RABEPRAZOLE SODIUM [Suspect]
     Route: 065
  8. CO-CODAMOL [Suspect]
     Route: 065
  9. SIMVASTATIN [Suspect]
     Route: 065
  10. ISOSORBIDE MONONITRATE [Suspect]
     Route: 065
  11. BISOPROLOL FUMARATE [Suspect]
     Route: 065

REACTIONS (2)
  - LEFT VENTRICULAR FAILURE [None]
  - MYOCARDIAL ISCHAEMIA [None]
